FAERS Safety Report 25226936 (Version 2)
Quarter: 2025Q2

REPORT INFORMATION
  Report Type: Spontaneous
  Country: FR (occurrence: FR)
  Receive Date: 20250422
  Receipt Date: 20250428
  Transmission Date: 20250716
  Serious: Yes (Life-Threatening, Other)
  Sender: MYLAN
  Company Number: None

PATIENT
  Age: 18 Year
  Sex: Female

DRUGS (16)
  1. ACETAMINOPHEN [Suspect]
     Active Substance: ACETAMINOPHEN
     Indication: Product used for unknown indication
     Dates: start: 20250404, end: 20250404
  2. ACETAMINOPHEN [Suspect]
     Active Substance: ACETAMINOPHEN
     Route: 048
     Dates: start: 20250404, end: 20250404
  3. ACETAMINOPHEN [Suspect]
     Active Substance: ACETAMINOPHEN
     Route: 048
     Dates: start: 20250404, end: 20250404
  4. ACETAMINOPHEN [Suspect]
     Active Substance: ACETAMINOPHEN
     Dates: start: 20250404, end: 20250404
  5. LAMOTRIGINE [Suspect]
     Active Substance: LAMOTRIGINE
     Indication: Product used for unknown indication
     Dates: start: 20250404, end: 20250404
  6. LAMOTRIGINE [Suspect]
     Active Substance: LAMOTRIGINE
     Route: 048
     Dates: start: 20250404, end: 20250404
  7. LAMOTRIGINE [Suspect]
     Active Substance: LAMOTRIGINE
     Route: 048
     Dates: start: 20250404, end: 20250404
  8. LAMOTRIGINE [Suspect]
     Active Substance: LAMOTRIGINE
     Dates: start: 20250404, end: 20250404
  9. IBUPROFEN [Suspect]
     Active Substance: IBUPROFEN
     Indication: Product used for unknown indication
     Dates: start: 20250404, end: 20250404
  10. IBUPROFEN [Suspect]
     Active Substance: IBUPROFEN
     Route: 048
     Dates: start: 20250404, end: 20250404
  11. IBUPROFEN [Suspect]
     Active Substance: IBUPROFEN
     Route: 048
     Dates: start: 20250404, end: 20250404
  12. IBUPROFEN [Suspect]
     Active Substance: IBUPROFEN
     Dates: start: 20250404, end: 20250404
  13. QUETIAPINE [Suspect]
     Active Substance: QUETIAPINE
     Indication: Product used for unknown indication
     Dates: start: 20250404, end: 20250404
  14. QUETIAPINE [Suspect]
     Active Substance: QUETIAPINE
     Route: 048
     Dates: start: 20250404, end: 20250404
  15. QUETIAPINE [Suspect]
     Active Substance: QUETIAPINE
     Route: 048
     Dates: start: 20250404, end: 20250404
  16. QUETIAPINE [Suspect]
     Active Substance: QUETIAPINE
     Dates: start: 20250404, end: 20250404

REACTIONS (8)
  - Depressed level of consciousness [Recovered/Resolved]
  - Tachycardia [Recovered/Resolved]
  - Mydriasis [Recovered/Resolved]
  - Rhabdomyolysis [Recovering/Resolving]
  - Agitation [Recovered/Resolved]
  - Vomiting [Recovered/Resolved]
  - Alanine aminotransferase increased [Not Recovered/Not Resolved]
  - Poisoning deliberate [Unknown]

NARRATIVE: CASE EVENT DATE: 20250404
